FAERS Safety Report 6902430-2 (Version None)
Quarter: 2010Q3

REPORT INFORMATION
  Report Type: 
  Country: None (occurrence: None)
  Receive Date: 20100803
  Receipt Date: 20080527
  Transmission Date: 20110219
  Serious: Yes (Other)
  Sender: FDA-Public Use
  Company Number: US-PFIZER INC-2008022058

PATIENT
  Sex: Female
  Weight: 59.545 kg

DRUGS (9)
  1. LYRICA [Suspect]
     Indication: FIBROMYALGIA
     Dates: start: 20070821
  2. LYRICA [Suspect]
     Indication: MULTIPLE SCLEROSIS
  3. ROZEREM [Concomitant]
  4. ESTROGEN NOS [Concomitant]
  5. SYNTHROID [Concomitant]
  6. ZANAFLEX [Concomitant]
  7. THYROID TAB [Concomitant]
  8. FOLGARD [Concomitant]
  9. ESTRADIOL [Concomitant]

REACTIONS (7)
  - EMOTIONAL DISTRESS [None]
  - OEDEMA PERIPHERAL [None]
  - PAIN [None]
  - SUICIDAL IDEATION [None]
  - VISION BLURRED [None]
  - VISUAL ACUITY REDUCED [None]
  - WEIGHT INCREASED [None]
